FAERS Safety Report 6468109-9 (Version None)
Quarter: 2009Q4

REPORT INFORMATION
  Report Type: 
  Country: None (occurrence: None)
  Receive Date: 20091127
  Receipt Date: 20091113
  Transmission Date: 20100525
  Serious: Yes (Other)
  Sender: FDA-Public Use
  Company Number: 8054576

PATIENT
  Age: 60 Year
  Sex: Female
  Weight: 76 kg

DRUGS (9)
  1. CERTOLIZUMAB PEGOL [Suspect]
     Indication: RHEUMATOID ARTHRITIS
     Dosage: 200 MG 1/2W SC
     Route: 058
     Dates: start: 20050615, end: 20050921
  2. CERTOLIZUMAB PEGOL [Suspect]
     Indication: RHEUMATOID ARTHRITIS
     Dosage: 400 MG 1/2W SC
     Route: 058
     Dates: start: 20051005, end: 20080124
  3. CERTOLIZUMAB PEGOL [Suspect]
     Indication: RHEUMATOID ARTHRITIS
     Dosage: 200 MG 1/2W SC
     Route: 058
     Dates: start: 20080207, end: 20091112
  4. METHOTREXATE [Concomitant]
  5. FOLATE [Concomitant]
  6. MELOXICAM [Concomitant]
  7. TRAMADOL HCL [Concomitant]
  8. INDOMETHACIN [Concomitant]
  9. DETRALEX [Concomitant]

REACTIONS (1)
  - BREAST CANCER FEMALE [None]
